FAERS Safety Report 7398988-2 (Version None)
Quarter: 2011Q2

REPORT INFORMATION
  Report Type: 
  Country: None (occurrence: None)
  Receive Date: 20110407
  Receipt Date: 20110330
  Transmission Date: 20111010
  Serious: Yes (Other)
  Sender: FDA-Public Use
  Company Number: MX-ELI_LILLY_AND_COMPANY-MX201104000241

PATIENT
  Age: 59 Year
  Sex: Female
  Weight: 69 kg

DRUGS (2)
  1. INSULIN NPH                        /01223208/ [Concomitant]
     Dosage: UNK
  2. HUMALOG [Suspect]
     Indication: DIABETES MELLITUS
     Dosage: 14 DF, UNK
     Route: 058
     Dates: start: 20030101

REACTIONS (4)
  - HYPOGLYCAEMIA [None]
  - KETOACIDOSIS [None]
  - WEIGHT INCREASED [None]
  - HYPERGLYCAEMIA [None]
